FAERS Safety Report 14547873 (Version 1)
Quarter: 2018Q1

REPORT INFORMATION
  Report Type: Spontaneous
  Country: US (occurrence: US)
  Receive Date: 20180219
  Receipt Date: 20180219
  Transmission Date: 20180509
  Serious: No
  Sender: FDA-Public Use
  Company Number: US-BAYER-2018-027518

PATIENT
  Age: 72 Year
  Sex: Male
  Weight: 98.96 kg

DRUGS (2)
  1. ALEVE PM [Suspect]
     Active Substance: DIPHENHYDRAMINE HYDROCHLORIDE\NAPROXEN SODIUM
     Indication: PAIN
     Route: 048
     Dates: start: 20180207
  2. SOMINEX [DIPHENHYDRAMINE HYDROCHLORIDE] [Concomitant]
     Dosage: 2 DF, UNK

REACTIONS (7)
  - Underdose [Unknown]
  - Product prescribing issue [None]
  - Middle insomnia [Recovered/Resolved]
  - Wrong technique in product usage process [Recovered/Resolved]
  - Abnormal dreams [Recovered/Resolved]
  - Contraindicated product administered [None]
  - Agitation [Recovered/Resolved]

NARRATIVE: CASE EVENT DATE: 20180207
